FAERS Safety Report 5145972-5 (Version None)
Quarter: 2006Q4

REPORT INFORMATION
  Report Type: 
  Country: None (occurrence: None)
  Receive Date: 20061108
  Receipt Date: 20061027
  Transmission Date: 20070319
  Serious: Yes (Hospitalization)
  Sender: FDA-Public Use
  Company Number: JP-BRISTOL-MYERS SQUIBB COMPANY-13564521

PATIENT
  Age: 74 Year
  Sex: Female

DRUGS (20)
  1. GATIFLO TABS 100 MG [Suspect]
     Indication: UPPER RESPIRATORY TRACT INFLAMMATION
     Route: 048
     Dates: start: 20061010, end: 20061016
  2. RHEUMATREX [Suspect]
     Indication: RHEUMATOID ARTHRITIS
     Route: 048
     Dates: end: 20061018
  3. LOXOPROFEN [Concomitant]
     Route: 048
     Dates: start: 20061010, end: 20061010
  4. SELBEX [Concomitant]
     Route: 048
     Dates: start: 20061010, end: 20061010
  5. VOLTAREN [Concomitant]
     Route: 054
     Dates: start: 20061010
  6. DEPAS [Concomitant]
     Route: 048
  7. BENET [Concomitant]
     Route: 048
  8. FOLIAMIN [Concomitant]
     Route: 048
  9. SHAKUYAKU-KANZOH-TOH [Concomitant]
     Route: 048
  10. FELBINAC [Concomitant]
     Route: 061
  11. PURSENNID [Concomitant]
     Route: 048
  12. CYTOTEC [Concomitant]
     Route: 048
  13. ASPIRIN [Concomitant]
     Route: 048
  14. BLOPRESS [Concomitant]
     Route: 048
  15. NORVASC [Concomitant]
     Route: 048
  16. TENORMIN [Concomitant]
     Route: 048
  17. SIMVASTATIN [Concomitant]
     Route: 048
  18. LANSOPRAZOLE [Concomitant]
     Route: 048
  19. VOGLIBOSE [Concomitant]
     Route: 048
  20. PERIACTIN [Concomitant]
     Route: 048

REACTIONS (1)
  - BONE MARROW FAILURE [None]
